FAERS Safety Report 14111529 (Version 4)
Quarter: 2018Q1

REPORT INFORMATION
  Report Type: Spontaneous
  Country: JP (occurrence: JP)
  Receive Date: 20171020
  Receipt Date: 20180117
  Transmission Date: 20180508
  Serious: Yes (Hospitalization)
  Sender: FDA-Public Use
  Company Number: JP-ASTELLAS-2017JP019765AA

PATIENT
  Age: 9 Decade
  Sex: Female

DRUGS (1)
  1. PROGRAF [Suspect]
     Active Substance: TACROLIMUS\TACROLIMUS ANHYDROUS
     Indication: RHEUMATOID ARTHRITIS
     Route: 048
     Dates: end: 20171018

REACTIONS (1)
  - Surgery [Recovered/Resolved]
